FAERS Safety Report 7418336-9 (Version None)
Quarter: 2011Q2

REPORT INFORMATION
  Report Type: 
  Country: None (occurrence: None)
  Receive Date: 20110415
  Receipt Date: 20110413
  Transmission Date: 20111010
  Serious: Yes (Other)
  Sender: FDA-Public Use
  Company Number: A0920874A

PATIENT
  Age: 65 Year
  Sex: Female

DRUGS (8)
  1. SORIATANE [Suspect]
     Dosage: 10MG PER DAY
     Route: 048
     Dates: start: 20110209, end: 20110323
  2. LEVOTHYROXINE SODIUM [Concomitant]
  3. TOPAMAX [Concomitant]
  4. TEGRETOL [Concomitant]
  5. AMLODIPINE [Concomitant]
  6. OMEPRAZOLE [Concomitant]
  7. MELOXICAM [Concomitant]
  8. CYMBALTA [Concomitant]

REACTIONS (3)
  - GRAND MAL CONVULSION [None]
  - IMMOBILE [None]
  - APHASIA [None]
